FAERS Safety Report 7335709-3 (Version None)
Quarter: 2011Q1

REPORT INFORMATION
  Report Type: 
  Country: None (occurrence: None)
  Receive Date: 20110307
  Receipt Date: 20110228
  Transmission Date: 20110831
  Serious: Yes (Hospitalization)
  Sender: FDA-Public Use
  Company Number: A0916805A

PATIENT
  Age: 72 Year
  Sex: Female

DRUGS (1)
  1. AROPAX [Suspect]
     Indication: DEPRESSION
     Route: 048
     Dates: start: 20101101, end: 20110212

REACTIONS (2)
  - PSYCHOTIC DISORDER [None]
  - DRUG ADMINISTRATION ERROR [None]
